FAERS Safety Report 10179307 (Version 2)
Quarter: 2014Q2

REPORT INFORMATION
  Report Type: Spontaneous
  Country: US (occurrence: US)
  Receive Date: 20140519
  Receipt Date: 20140618
  Transmission Date: 20141212
  Serious: No
  Sender: FDA-Public Use
  Company Number: US-009507513-1405USA007268

PATIENT
  Age: 24 Year
  Sex: Female
  Weight: 63.49 kg

DRUGS (3)
  1. IMPLANON [Suspect]
     Indication: CONTRACEPTION
     Dosage: EVERY 3 YEARS, 1 ROD LEFT ARM
     Route: 059
     Dates: start: 20110502
  2. REGLAN [Concomitant]
     Dosage: 20 MG, QD
  3. EFEXOR [Concomitant]
     Dosage: 75 MG, QD

REACTIONS (3)
  - Device difficult to use [Not Recovered/Not Resolved]
  - Device deployment issue [Not Recovered/Not Resolved]
  - Incorrect drug administration duration [Unknown]
